FAERS Safety Report 21690430 (Version 1)
Quarter: 2022Q4

REPORT INFORMATION
  Report Type: Spontaneous
  Country: US (occurrence: US)
  Receive Date: 20221206
  Receipt Date: 20221206
  Transmission Date: 20230112
  Serious: Yes (Death, Other)
  Sender: FDA-Public Use
  Company Number: US-BRISTOL-MYERS SQUIBB COMPANY-2022-147489

PATIENT
  Sex: Male

DRUGS (1)
  1. OPDIVO [Suspect]
     Active Substance: NIVOLUMAB
     Indication: Malignant melanoma
     Route: 065

REACTIONS (6)
  - Pain [Unknown]
  - Oedema [Unknown]
  - Fatigue [Unknown]
  - Hypotension [Unknown]
  - Cardiac failure [Fatal]
  - Myocarditis [Fatal]

NARRATIVE: CASE EVENT DATE: 20221101
